FAERS Safety Report 15167298 (Version 1)
Quarter: 2018Q3

REPORT INFORMATION
  Report Type: Spontaneous
  Country: US (occurrence: US)
  Receive Date: 20180719
  Receipt Date: 20180719
  Transmission Date: 20181010
  Serious: No
  Sender: FDA-Public Use
  Company Number: US-SA-2018SA163363

PATIENT

DRUGS (2)
  1. MORPHINE [Concomitant]
     Active Substance: MORPHINE
     Route: 065
  2. UNISOM SLEEPTABS [Suspect]
     Active Substance: DOXYLAMINE SUCCINATE
     Route: 065

REACTIONS (2)
  - Insomnia [Unknown]
  - Drug ineffective [Unknown]
